FAERS Safety Report 10151784 (Version 1)
Quarter: 2014Q2

REPORT INFORMATION
  Report Type: Spontaneous
  Country: CA (occurrence: CA)
  Receive Date: 20140505
  Receipt Date: 20140505
  Transmission Date: 20141212
  Serious: Yes (Other)
  Sender: FDA-Public Use
  Company Number: CA-009507513-1405CAN000906

PATIENT
  Age: 35 Year
  Sex: Female

DRUGS (11)
  1. ISENTRESS [Suspect]
     Indication: HIV INFECTION
     Dosage: UNK
     Route: 048
     Dates: start: 201203
  2. TRUVADA [Suspect]
     Indication: HIV INFECTION
     Dosage: UNK
     Route: 048
     Dates: start: 201203
  3. SPIRIVA [Concomitant]
     Dosage: 18 MICROGRAM, 1 PUFF DAILY
     Route: 065
  4. SYMBICORT [Concomitant]
     Dosage: STRENGTH: 200/6 (UNITS UNSPECIFIED), 2 PUFFS TWICE DAILY
     Route: 065
  5. TYLENOL [Concomitant]
     Route: 065
  6. ADVIL [Concomitant]
     Route: 065
  7. SEROQUEL [Concomitant]
     Dosage: 175 MG, HS
     Route: 065
  8. LAMICTAL [Concomitant]
     Dosage: 225 MG, HS
     Route: 065
  9. TYLENOL WITH CODEINE #3 [Concomitant]
     Route: 065
  10. CYANOCOBALAMIN [Concomitant]
     Route: 065
  11. NIACINAMIDE [Concomitant]
     Route: 065

REACTIONS (1)
  - Obliterative bronchiolitis [Unknown]
